FAERS Safety Report 6292727-4 (Version None)
Quarter: 2009Q3

REPORT INFORMATION
  Report Type: 
  Country: None (occurrence: None)
  Receive Date: 20090731
  Receipt Date: 20090729
  Transmission Date: 20100115
  Serious: Yes (Life-Threatening)
  Sender: FDA-Public Use
  Company Number: A0799443A

PATIENT
  Age: 37 Year
  Sex: Male
  Weight: 90 kg

DRUGS (1)
  1. ADVAIR HFA [Suspect]
     Indication: DRUG USE FOR UNKNOWN INDICATION
     Route: 065

REACTIONS (9)
  - BALANCE DISORDER [None]
  - BREATH ODOUR [None]
  - CONFUSIONAL STATE [None]
  - FEELING DRUNK [None]
  - GLOSSODYNIA [None]
  - SKIN ODOUR ABNORMAL [None]
  - TONGUE DISCOLOURATION [None]
  - TONGUE OEDEMA [None]
  - VISION BLURRED [None]
